FAERS Safety Report 7807936-X (Version None)
Quarter: 2011Q4

REPORT INFORMATION
  Report Type: 
  Country: None (occurrence: None)
  Receive Date: 20111011
  Receipt Date: 20111011
  Transmission Date: 20120403
  Serious: Yes (Hospitalization, Other)
  Sender: FDA-Public Use
  Company Number: None

PATIENT
  Sex: Male

DRUGS (1)
  1. AMIODARONE HCL [Suspect]
     Indication: ARRHYTHMIA
     Dosage: ONE TABLET
     Route: 048
     Dates: start: 20070501, end: 20101210

REACTIONS (9)
  - WEIGHT DECREASED [None]
  - PNEUMONIA [None]
  - ARRHYTHMIA [None]
  - OXYGEN SATURATION DECREASED [None]
  - THROMBOSIS [None]
  - DYSPNOEA [None]
  - LUNG DISORDER [None]
  - COMA [None]
  - ASTHENIA [None]
